FAERS Safety Report 9667944 (Version 2)
Quarter: 2013Q4

REPORT INFORMATION
  Report Type: Spontaneous
  Country: US (occurrence: None)
  Receive Date: 20131101
  Receipt Date: 20131105
  Transmission Date: 20140711
  Serious: Yes (Hospitalization)
  Sender: FDA-Public Use
  Company Number: 2013-US-002400

PATIENT
  Age: 48 Year
  Sex: Female
  Weight: 131.5 kg

DRUGS (2)
  1. XYREM (SODIUM OXYBATE) ORAL SOLUTION, 500MG/ML [Suspect]
     Indication: NARCOLEPSY
     Route: 048
     Dates: start: 20130508, end: 2013
  2. XYREM (SODIUM OXYBATE) ORAL SOLUTION, 500MG/ML [Suspect]
     Indication: CATAPLEXY
     Route: 048
     Dates: start: 20130508, end: 2013

REACTIONS (5)
  - Surgery [None]
  - Oropharyngeal pain [None]
  - Neck pain [None]
  - Vomiting [None]
  - Nausea [None]
